FAERS Safety Report 10062892 (Version 1)
Quarter: 2014Q2

REPORT INFORMATION
  Report Type: Spontaneous
  Country: US (occurrence: US)
  Receive Date: 20140407
  Receipt Date: 20140407
  Transmission Date: 20141212
  Serious: Yes (Hospitalization, Other)
  Sender: FDA-Public Use
  Company Number: PHHY2014US037966

PATIENT
  Age: 52 Year
  Sex: Female

DRUGS (4)
  1. HYDROCHLOROTHIAZIDE [Suspect]
     Indication: HYPERTENSION
     Dosage: 25 MG, DAILY
  2. LISINOPRIL [Suspect]
     Indication: HYPERTENSION
     Dosage: 80 MG, DAILY
  3. LISINOPRIL [Suspect]
     Dosage: 40 MG, DAILY
  4. METOPROLOL [Suspect]
     Indication: HYPERTENSION
     Dosage: 25 MG, BID

REACTIONS (4)
  - Dehydration [Unknown]
  - Syncope [Unknown]
  - Blood pressure increased [Unknown]
  - Drug ineffective [Unknown]
